FAERS Safety Report 10516364 (Version 2)
Quarter: 2015Q2

REPORT INFORMATION
  Report Type: Other
  Country: IT (occurrence: IT)
  Receive Date: 20141014
  Receipt Date: 20150402
  Transmission Date: 20150821
  Serious: Yes (Hospitalization)
  Sender: FDA-Public Use
  Company Number: IT-MYLANLABS-2014M1006750

PATIENT
  Age: 48 Year
  Sex: Female

DRUGS (4)
  1. PAROXETINA MYLAN GENERICS [Suspect]
     Active Substance: PAROXETINE HYDROCHLORIDE
     Dosage: 400 MG, TOTAL
     Route: 048
     Dates: start: 20140925, end: 20140925
  2. XANAX [Concomitant]
     Active Substance: ALPRAZOLAM
     Indication: DEPRESSION
     Dosage: 20 DF
     Route: 048
     Dates: start: 20140922, end: 20140925
  3. PAROXETINA MYLAN GENERICS [Suspect]
     Active Substance: PAROXETINE HYDROCHLORIDE
     Dosage: 1 DF, QD
     Route: 048
     Dates: start: 20140922, end: 20140924
  4. PAROXETINA MYLAN GENERICS [Suspect]
     Active Substance: PAROXETINE HYDROCHLORIDE
     Indication: DEPRESSION

REACTIONS (4)
  - Drug abuse [Recovering/Resolving]
  - Headache [Recovering/Resolving]
  - Overdose [Recovering/Resolving]
  - Somnolence [Recovering/Resolving]

NARRATIVE: CASE EVENT DATE: 20140925
